FAERS Safety Report 10750619 (Version 1)
Quarter: 2015Q1

REPORT INFORMATION
  Report Type: Spontaneous
  Country: US (occurrence: None)
  Receive Date: 20150128
  Receipt Date: 20150128
  Transmission Date: 20150721
  Serious: Yes (Other)
  Sender: FDA-Public Use
  Company Number: A14-064-K

PATIENT
  Age: 31 Year
  Sex: Female

DRUGS (2)
  1. T RW W [Suspect]
     Active Substance: ALLERGENIC EXTRACTS
     Indication: IMMUNE SYSTEM DISORDER
     Dates: start: 20141124
  2. G DF D [Suspect]
     Active Substance: ALLERGENIC EXTRACTS
     Indication: IMMUNE SYSTEM DISORDER
     Dates: start: 20141124

REACTIONS (1)
  - Urticaria [None]

NARRATIVE: CASE EVENT DATE: 20141124
